FAERS Safety Report 5668235-8 (Version None)
Quarter: 2008Q1

REPORT INFORMATION
  Report Type: 
  Country: None (occurrence: None)
  Receive Date: 20080313
  Receipt Date: 20080303
  Transmission Date: 20080703
  Serious: Yes (Other)
  Sender: FDA-Public Use
  Company Number: B0430668A

PATIENT
  Age: 82 Year
  Sex: Male
  Weight: 39.9165 kg

DRUGS (9)
  1. PAXIL [Suspect]
     Indication: DEPRESSIVE SYMPTOM
     Dosage: PER DAY / ORAL
     Route: 048
     Dates: start: 20060518, end: 20060703
  2. DONEPEZIL HCL [Concomitant]
  3. NIZATIDINE [Concomitant]
  4. FAMOTIDINE [Concomitant]
  5. MOSAPRIDE CITRATE [Concomitant]
  6. EXCELASE [Concomitant]
  7. FUSOSTEINE [Concomitant]
  8. TIOTROPIUM [Concomitant]
  9. NAFTOPIDIL [Concomitant]

REACTIONS (8)
  - BREATH SOUNDS ABNORMAL [None]
  - DEPRESSED MOOD [None]
  - EMPHYSEMA [None]
  - HYPOPROTEINAEMIA [None]
  - INAPPROPRIATE ANTIDIURETIC HORMONE SECRETION [None]
  - INFLAMMATION [None]
  - LACUNAR INFARCTION [None]
  - WEIGHT DECREASED [None]
